FAERS Safety Report 24291115 (Version 2)
Quarter: 2024Q4

REPORT INFORMATION
  Report Type: Spontaneous
  Country: DE (occurrence: DE)
  Receive Date: 20240906
  Receipt Date: 20241018
  Transmission Date: 20250115
  Serious: Yes (Other)
  Sender: Harrow Health
  Company Number: DE-IMP-2024000683

PATIENT
  Sex: Male

DRUGS (11)
  1. NEVANAC [Suspect]
     Active Substance: NEPAFENAC
     Indication: Macular oedema
     Dosage: QD (ONCE A DAY IN THE EVENING)
     Route: 047
     Dates: start: 20240815, end: 20240820
  2. NEVANAC [Suspect]
     Active Substance: NEPAFENAC
     Indication: Macular oedema
     Dosage: 1 MILLIGRAM PER MILLILITRE , 3 DROPS EVERY HOUR/ UP TO 30-45 TIMES A DAY
     Route: 047
     Dates: start: 20240821, end: 20240905
  3. NEVANAC [Suspect]
     Active Substance: NEPAFENAC
     Indication: Macular oedema
     Dosage: 3 MG, 1 DROP EVERY ONE HOUR
     Route: 047
     Dates: start: 20240821, end: 20240905
  4. NEVANAC [Suspect]
     Active Substance: NEPAFENAC
     Indication: Macular oedema
     Dosage: 3 MG, 1 DROP EVERY OTHER HOUR
     Route: 047
     Dates: start: 20240821, end: 20240905
  5. NEVANAC [Suspect]
     Active Substance: NEPAFENAC
     Indication: Macular oedema
     Dosage: 1 MG, 3 DROP EVERY OTHER HOUR
     Route: 047
     Dates: start: 20240905, end: 20240923
  6. NEVANAC [Suspect]
     Active Substance: NEPAFENAC
     Indication: Macular oedema
     Dosage: 3 MG, 3 DROP EVERY OTHER HOUR
     Route: 047
     Dates: start: 20240905, end: 20240923
  7. TRAVATAN [Suspect]
     Active Substance: TRAVOPROST
     Indication: Product used for unknown indication
     Dosage: LEFT EYE/RIGHT EYE
     Route: 047
     Dates: start: 20240821
  8. ELIQUIS [Suspect]
     Active Substance: APIXABAN
     Indication: Product used for unknown indication
     Route: 065
  9. Primovision [Concomitant]
     Indication: Product used for unknown indication
     Route: 065
     Dates: start: 20240821
  10. BRIMONIDINE [Concomitant]
     Active Substance: BRIMONIDINE TARTRATE
     Indication: Product used for unknown indication
     Route: 065
     Dates: start: 20240821
  11. COSOPT [Concomitant]
     Active Substance: DORZOLAMIDE HYDROCHLORIDE\TIMOLOL MALEATE
     Indication: Product used for unknown indication
     Route: 065
     Dates: start: 20240821

REACTIONS (4)
  - Macular oedema [Recovered/Resolved]
  - Off label use [Unknown]
  - Off label use [Unknown]
  - Treatment noncompliance [Unknown]

NARRATIVE: CASE EVENT DATE: 20240815
